FAERS Safety Report 9752530 (Version 1)
Quarter: 2013Q4

REPORT INFORMATION
  Report Type: Spontaneous
  Country: US (occurrence: US)
  Receive Date: 20131213
  Receipt Date: 20131213
  Transmission Date: 20140711
  Serious: Yes (Hospitalization)
  Sender: FDA-Public Use
  Company Number: US-NOVOPROD-394279

PATIENT
  Age: 6 Year
  Sex: Male
  Weight: 24.04 kg

DRUGS (4)
  1. NOVOLOG [Suspect]
     Indication: TYPE 1 DIABETES MELLITUS
     Dosage: UNKNOWN, THREE TO FOUR TIMES A DAY
     Route: 058
     Dates: start: 200902
  2. LANTUS [Concomitant]
     Indication: TYPE 1 DIABETES MELLITUS
     Dosage: UNKNOWN
  3. ALBUTEROL                          /00139501/ [Concomitant]
     Indication: ASTHMA
     Dosage: UNKNOWN, PRN
  4. BUDESONIDE [Concomitant]
     Indication: ASTHMA
     Dosage: UNKNOWN, PRN

REACTIONS (3)
  - Asthma [Recovered/Resolved]
  - Drug interaction [Recovered/Resolved]
  - Blood glucose increased [Recovered/Resolved]
